FAERS Safety Report 7513959-0 (Version None)
Quarter: 2011Q2

REPORT INFORMATION
  Report Type: 
  Country: None (occurrence: None)
  Receive Date: 20110531
  Receipt Date: 20110523
  Transmission Date: 20111010
  Serious: Yes (Death, Other)
  Sender: FDA-Public Use
  Company Number: US-GENZYME-CLOF-1001423

PATIENT
  Sex: Male
  Weight: 110 kg

DRUGS (12)
  1. ONDANSETRON [Concomitant]
     Indication: NAUSEA
     Dosage: UNK
     Route: 065
     Dates: start: 20061001
  2. PLATELETS [Concomitant]
     Indication: THROMBOCYTOPENIA
     Dosage: 1 U, ONCE
     Route: 065
     Dates: start: 20061001
  3. PROCHLORPERAZINE TAB [Concomitant]
     Indication: VOMITING
  4. MORPHINE [Concomitant]
     Indication: ANALGESIC THERAPY
     Dosage: 1 MG, QID
     Route: 065
     Dates: start: 20061001
  5. PROCRIT [Concomitant]
     Indication: ANAEMIA
     Dosage: UNK
     Route: 065
     Dates: start: 20061001
  6. GABAPENTIN [Concomitant]
     Indication: NEUROPATHY PERIPHERAL
     Dosage: UNK
     Route: 065
     Dates: start: 20061001
  7. FENTANYL [Concomitant]
     Indication: ANALGESIC THERAPY
     Dosage: 75 UNK, QID
     Route: 065
     Dates: start: 20061001
  8. PROCHLORPERAZINE TAB [Concomitant]
     Indication: NAUSEA
     Dosage: UNK
     Route: 065
     Dates: start: 20061001
  9. LANTUS [Concomitant]
     Indication: DIABETES MELLITUS
     Dosage: 15-20 U, UNK
     Route: 065
     Dates: start: 20061001
  10. CLOLAR [Suspect]
     Indication: B-CELL LYMPHOMA
     Dosage: 6 MG/M2, UNK
     Route: 042
     Dates: start: 20061011, end: 20061015
  11. ONDANSETRON [Concomitant]
     Indication: VOMITING
  12. INSULIN [Concomitant]
     Indication: PRODUCT USED FOR UNKNOWN INDICATION
     Dosage: UNK
     Route: 065
     Dates: start: 20061001

REACTIONS (6)
  - ANAEMIA [None]
  - DEATH [None]
  - BONE MARROW FAILURE [None]
  - THROMBOCYTOPENIA [None]
  - LEUKOPENIA [None]
  - B-CELL LYMPHOMA [None]
